FAERS Safety Report 7075404-1 (Version None)
Quarter: 2010Q4

REPORT INFORMATION
  Report Type: 
  Country: None (occurrence: None)
  Receive Date: 20101030
  Receipt Date: 20100902
  Transmission Date: 20110411
  Serious: No
  Sender: FDA-Public Use
  Company Number: US-WYE-H17345810

PATIENT
  Sex: Female

DRUGS (1)
  1. PRISTIQ [Suspect]
     Dosage: 100 MG UNSPECIFIED FREQUENCY

REACTIONS (3)
  - ABNORMAL DREAMS [None]
  - ANXIETY [None]
  - FEELING ABNORMAL [None]
